FAERS Safety Report 16113300 (Version 5)
Quarter: 2019Q3

REPORT INFORMATION
  Report Type: Report from Study
  Country: KR (occurrence: KR)
  Receive Date: 20190325
  Receipt Date: 20190830
  Transmission Date: 20191004
  Serious: Yes (Hospitalization)
  Sender: FDA-Public Use
  Company Number: KR-COLLEGIUM PHARMACEUTICAL, INC.-KR-2019COL000393

PATIENT
  Age: 65 Year
  Sex: Female

DRUGS (49)
  1. NUCYNTA ER [Suspect]
     Active Substance: TAPENTADOL HYDROCHLORIDE
     Dosage: 100 MG, BID
     Route: 048
     Dates: start: 20190122
  2. STILNOX [Concomitant]
     Active Substance: ZOLPIDEM TARTRATE
     Indication: INSOMNIA
     Dosage: UNK
     Dates: start: 20180511, end: 20190218
  3. SANCUSO [Concomitant]
     Active Substance: GRANISETRON
     Indication: ASCITES
     Dosage: UNK
     Dates: start: 20190129, end: 20190204
  4. EMEND [Concomitant]
     Active Substance: APREPITANT
     Indication: ASCITES
     Dosage: UNK
     Dates: start: 20190131, end: 20190201
  5. ZANAPAM [Concomitant]
     Dosage: UNK
     Dates: start: 20190208, end: 20190218
  6. MORPHINE SULPHATE [Concomitant]
     Active Substance: MORPHINE SULFATE
     Dosage: UNK
     Dates: start: 20190218, end: 20190219
  7. MORPHINE SULPHATE [Concomitant]
     Active Substance: MORPHINE SULFATE
     Dosage: UNK
     Dates: start: 20190220, end: 20190220
  8. MORPHINE SULPHATE [Concomitant]
     Active Substance: MORPHINE SULFATE
     Dosage: UNK
     Dates: start: 20190222, end: 20190222
  9. ZOFRAN [Concomitant]
     Active Substance: ONDANSETRON HYDROCHLORIDE
     Indication: ASCITES
     Dosage: UNK
     Dates: start: 20190130, end: 20190201
  10. CEFOTAXIME [Concomitant]
     Active Substance: CEFOTAXIME SODIUM
     Dosage: UNK
     Dates: start: 20190219, end: 20190221
  11. CEFOTAXIME [Concomitant]
     Active Substance: CEFOTAXIME SODIUM
     Dosage: UNK
     Dates: start: 20190222, end: 20190222
  12. MAGMIL S [Concomitant]
     Indication: CONSTIPATION
     Dosage: UNK
     Dates: start: 20180720, end: 20190219
  13. SULPRIDE [Concomitant]
     Active Substance: SULPIRIDE
     Indication: ABDOMINAL DISTENSION
     Dosage: UNK
     Dates: start: 20190129, end: 20190212
  14. MORPHINE SULPHATE [Concomitant]
     Active Substance: MORPHINE SULFATE
     Dosage: UNK
     Dates: start: 20190215, end: 20190215
  15. MAGMIL S [Concomitant]
     Dosage: UNK
     Dates: start: 20190226
  16. TARGIN [Concomitant]
     Active Substance: NALOXONE HYDROCHLORIDE\OXYCODONE HYDROCHLORIDE
     Indication: ABDOMINAL PAIN
     Dosage: UNK
     Dates: start: 20190101, end: 20190213
  17. SMOFLIPID [Concomitant]
     Active Substance: FISH OIL\MEDIUM-CHAIN TRIGLYCERIDES\OLIVE OIL\SOYBEAN OIL
     Indication: MALNUTRITION
     Dosage: UNK
     Dates: start: 20190206, end: 20190206
  18. MACPERAN [Concomitant]
     Active Substance: METOCLOPRAMIDE HYDROCHLORIDE
     Dosage: UNK
     Dates: start: 20190208, end: 20190208
  19. ZANAPAM [Concomitant]
     Indication: INSOMNIA
     Dosage: UNK
     Dates: start: 20190208, end: 20190218
  20. MORPHINE SULPHATE [Concomitant]
     Active Substance: MORPHINE SULFATE
     Indication: ABDOMINAL PAIN
     Dosage: UNK
     Dates: start: 20190212, end: 20190212
  21. KEYTRUDA [Concomitant]
     Active Substance: PEMBROLIZUMAB
     Indication: GASTRIC CANCER
     Dosage: UNK
     Dates: start: 20190215, end: 20190215
  22. ATIVAN [Concomitant]
     Active Substance: LORAZEPAM
     Indication: INSOMNIA
     Dosage: UNK
     Dates: start: 20190220, end: 20190220
  23. NUCYNTA ER [Suspect]
     Active Substance: TAPENTADOL HYDROCHLORIDE
     Indication: PAIN
     Dosage: 50 MG, BID
     Route: 048
     Dates: start: 20180918, end: 20190122
  24. EBASTEL [Concomitant]
     Active Substance: EBASTINE
     Indication: RASH
     Dosage: UNK
     Dates: start: 20190108, end: 20190214
  25. HUMAN SERUM ALBUMIN [Concomitant]
     Active Substance: ALBUMIN HUMAN
     Dosage: UNK
     Dates: start: 20190212, end: 20190212
  26. HUMAN SERUM ALBUMIN [Concomitant]
     Active Substance: ALBUMIN HUMAN
     Dosage: UNK
     Dates: start: 20190215, end: 20190215
  27. HUMAN SERUM ALBUMIN [Concomitant]
     Active Substance: ALBUMIN HUMAN
     Dosage: UNK
     Dates: start: 20190218, end: 20190218
  28. ZANAPAM [Concomitant]
     Dosage: UNK
     Dates: start: 20190220
  29. TARGIN [Concomitant]
     Active Substance: NALOXONE HYDROCHLORIDE\OXYCODONE HYDROCHLORIDE
     Dosage: UNK
     Dates: start: 20190123
  30. RESOLOR [Concomitant]
     Active Substance: PRUCALOPRIDE SUCCINATE
     Indication: CONSTIPATION
     Dosage: 2 MG, QD
     Dates: start: 20190122
  31. MACPERAN [Concomitant]
     Active Substance: METOCLOPRAMIDE HYDROCHLORIDE
     Dosage: UNK
     Dates: start: 20190219, end: 20190220
  32. MACPERAN [Concomitant]
     Active Substance: METOCLOPRAMIDE HYDROCHLORIDE
     Indication: PROPHYLAXIS OF NAUSEA AND VOMITING
     Dosage: UNK
     Dates: start: 20190208, end: 20190212
  33. ZANAPAM [Concomitant]
     Dosage: UNK
     Dates: start: 20190220, end: 20190220
  34. PHOSTEN [Concomitant]
     Indication: PROPHYLAXIS
     Dosage: UNK
     Dates: start: 20190212, end: 20190212
  35. PETHIDINE HCL [Concomitant]
     Indication: ABDOMINAL PAIN
     Dosage: UNK
     Dates: start: 20190218, end: 20190218
  36. STILNOX [Concomitant]
     Active Substance: ZOLPIDEM TARTRATE
     Dosage: UNK
     Dates: start: 20190221
  37. SOXINASE [Concomitant]
     Indication: DYSPEPSIA
     Dosage: UNK
     Dates: start: 20190215
  38. DUPHALAC EASY [Concomitant]
     Indication: CONSTIPATION
     Dosage: 15 ML, TID
     Dates: start: 20190122, end: 20190206
  39. DUPHALAC EASY [Concomitant]
     Dosage: UNK
     Dates: start: 20190215, end: 20190215
  40. DUPHALAC EASY [Concomitant]
     Dosage: UNK
     Dates: start: 20190226
  41. MACPERAN [Concomitant]
     Active Substance: METOCLOPRAMIDE HYDROCHLORIDE
     Indication: ASCITES
     Dosage: UNK
     Dates: start: 20190207, end: 20190207
  42. MORPHINE SULPHATE [Concomitant]
     Active Substance: MORPHINE SULFATE
     Dosage: UNK
     Dates: start: 20190221, end: 20190221
  43. ABSTRAL [Concomitant]
     Active Substance: FENTANYL CITRATE
     Indication: ABDOMINAL PAIN
     Dosage: UNK
     Dates: start: 20190216
  44. CEFOTAXIME [Concomitant]
     Active Substance: CEFOTAXIME SODIUM
     Indication: INFECTION PROPHYLAXIS
     Dosage: UNK
     Dates: start: 20190218, end: 20190218
  45. SANCUSO [Concomitant]
     Active Substance: GRANISETRON
     Dosage: UNK
     Dates: start: 20190221
  46. HUMAN SERUM ALBUMIN [Concomitant]
     Active Substance: ALBUMIN HUMAN
     Indication: ASCITES
     Dosage: UNK
     Dates: start: 20190206, end: 20190207
  47. HUMAN SERUM ALBUMIN [Concomitant]
     Active Substance: ALBUMIN HUMAN
     Dosage: UNK
     Dates: start: 20190226, end: 20190226
  48. WINUF [Concomitant]
     Indication: MALNUTRITION
     Dosage: UNK
     Dates: start: 20190218, end: 20190221
  49. MEIACT [Concomitant]
     Active Substance: CEFDITOREN PIVOXIL
     Indication: INFECTION PROPHYLAXIS
     Dosage: UNK
     Dates: start: 20190222, end: 20190226

REACTIONS (4)
  - Constipation [Recovered/Resolved]
  - Catheter site infection [Recovered/Resolved]
  - Oedema peripheral [Recovered/Resolved]
  - Ascites [Recovered/Resolved]

NARRATIVE: CASE EVENT DATE: 20190218
